FAERS Safety Report 14012173 (Version 7)
Quarter: 2018Q1

REPORT INFORMATION
  Report Type: Spontaneous
  Country: BR (occurrence: BR)
  Receive Date: 20170926
  Receipt Date: 20180103
  Transmission Date: 20180508
  Serious: Yes (Hospitalization, Other)
  Sender: FDA-Public Use
  Company Number: BR-ALEXION PHARMACEUTICALS INC.-A201710304

PATIENT
  Age: 38 Year
  Sex: Male

DRUGS (2)
  1. SOLIRIS [Suspect]
     Active Substance: ECULIZUMAB
     Dosage: 900 MG ON THE FIFTH WEK AND Q2W
     Route: 042
     Dates: start: 20160510
  2. SOLIRIS [Suspect]
     Active Substance: ECULIZUMAB
     Indication: PAROXYSMAL NOCTURNAL HAEMOGLOBINURIA
     Dosage: 600 MG, QW FOR 4 WEEKS
     Route: 042
     Dates: start: 20160412, end: 20160503

REACTIONS (19)
  - Asthenia [Unknown]
  - Thrombocytopenia [Not Recovered/Not Resolved]
  - Weight decreased [Recovered/Resolved]
  - Feeding disorder [Recovered/Resolved]
  - Macrocytosis [Unknown]
  - Lymphocyte count decreased [Unknown]
  - Blood sodium decreased [Unknown]
  - Fatigue [Recovered/Resolved]
  - Haemolysis [Recovered/Resolved]
  - Anaemia [Not Recovered/Not Resolved]
  - Dysphagia [Unknown]
  - Blood lactate dehydrogenase increased [Not Recovered/Not Resolved]
  - Chromaturia [Unknown]
  - Anisocytosis [Unknown]
  - Red blood cell count decreased [Unknown]
  - Hand fracture [Recovering/Resolving]
  - White blood cell count decreased [Unknown]
  - Haemoglobinuria [Recovered/Resolved]
  - Inappropriate schedule of drug administration [Recovered/Resolved]

NARRATIVE: CASE EVENT DATE: 20170905
